FAERS Safety Report 5370794-X (Version None)
Quarter: 2007Q2

REPORT INFORMATION
  Report Type: 
  Country: None (occurrence: None)
  Receive Date: 20070626
  Receipt Date: 20070620
  Transmission Date: 20071010
  Serious: Yes (Disabling)
  Sender: FDA-Public Use
  Company Number: B0475911A

PATIENT
  Age: 10 Year
  Sex: Male
  Weight: 25.5 kg

DRUGS (12)
  1. ALKERAN [Suspect]
     Indication: STEM CELL TRANSPLANT
     Dosage: 70MG PER DAY
     Route: 042
     Dates: start: 20030113, end: 20030119
  2. THIOTEPA [Suspect]
     Indication: STEM CELL TRANSPLANT
     Dosage: 2MG PER DAY
     Dates: start: 20030113, end: 20030119
  3. NEUTROGIN [Concomitant]
     Dates: start: 20030124, end: 20030202
  4. FIRSTCIN [Concomitant]
     Dosage: 2G PER DAY
     Route: 042
     Dates: start: 20030120, end: 20030124
  5. CARBENIN [Concomitant]
     Dosage: 1.5G PER DAY
     Route: 042
     Dates: start: 20030124, end: 20030129
  6. AMIKACIN SULFATE [Concomitant]
     Dosage: 200MG PER DAY
     Dates: start: 20030124, end: 20030129
  7. DIFLUCAN [Concomitant]
     Dosage: 100MG PER DAY
     Route: 042
     Dates: start: 20030127, end: 20030202
  8. ZOVIRAX [Concomitant]
     Dosage: 125MG PER DAY
     Route: 042
     Dates: start: 20030121, end: 20030203
  9. FUNGIZONE [Concomitant]
     Dosage: 6ML PER DAY
     Route: 048
     Dates: start: 20030110, end: 20030206
  10. BAKTAR [Concomitant]
     Route: 048
     Dates: start: 20030210
  11. POLYMYXIN B SULFATE [Concomitant]
     Route: 048
     Dates: start: 20020820, end: 20030209
  12. FLORID [Concomitant]

REACTIONS (2)
  - DIARRHOEA [None]
  - STOMATITIS [None]
